FAERS Safety Report 6710258-1 (Version None)
Quarter: 2010Q2

REPORT INFORMATION
  Report Type: 
  Country: None (occurrence: None)
  Receive Date: 20100504
  Receipt Date: 20100423
  Transmission Date: 20101027
  Serious: Yes (Hospitalization)
  Sender: FDA-Public Use
  Company Number: SE-JNJFOC-20090502002

PATIENT
  Sex: Male
  Weight: 75 kg

DRUGS (7)
  1. REMICADE [Suspect]
     Indication: CROHN'S DISEASE
     Dosage: INFUSIONS GIVEN FOR 2 YEARS WITH UNSPECIFIED DATES
     Route: 042
     Dates: start: 20090109
  2. REMICADE [Suspect]
     Dosage: INFUSIONS GIVEN FOR 2 YEARS WITH UNSPECIFIED DATES
     Route: 042
     Dates: start: 20090109
  3. REMICADE [Suspect]
     Dosage: INFUSIONS GIVEN FOR 2 YEARS WITH UNSPECIFIED DATES
     Route: 042
     Dates: start: 20090109
  4. PENTASA [Concomitant]
     Indication: CROHN'S DISEASE
  5. BEHEPAN [Concomitant]
     Indication: UNEVALUABLE EVENT
  6. ACETATED RINGER [Concomitant]
     Indication: FLUID REPLACEMENT
  7. IMODIUM [Concomitant]
     Indication: CROHN'S DISEASE

REACTIONS (2)
  - SMALL INTESTINAL STENOSIS [None]
  - SUBILEUS [None]
